FAERS Safety Report 5786897-1 (Version None)
Quarter: 2008Q2

REPORT INFORMATION
  Report Type: 
  Country: None (occurrence: None)
  Receive Date: 20080625
  Receipt Date: 20080617
  Transmission Date: 20081010
  Serious: Yes (Other)
  Sender: FDA-Public Use
  Company Number: GB-RANBAXY-2008RR-16027

PATIENT

DRUGS (4)
  1. ATENOLOL [Suspect]
     Indication: HYPERTENSION
  2. PROPANOLOL TABLETS BP 10MG [Suspect]
     Indication: MIGRAINE
  3. SILDENAFIL CITRATE [Suspect]
  4. HYDROCORTISONE [Concomitant]

REACTIONS (2)
  - HYPOPITUITARISM [None]
  - PITUITARY HAEMORRHAGE [None]
